FAERS Safety Report 6468950-2 (Version None)
Quarter: 2009Q4

REPORT INFORMATION
  Report Type: 
  Country: None (occurrence: None)
  Receive Date: 20091203
  Receipt Date: 20080508
  Transmission Date: 20100525
  Serious: Yes (Hospitalization)
  Sender: FDA-Public Use
  Company Number: US-ELI_LILLY_AND_COMPANY-US200605006499

PATIENT
  Sex: Male
  Weight: 83.9 kg

DRUGS (1)
  1. ZYPREXA [Suspect]
     Dates: start: 19980708, end: 20030613

REACTIONS (2)
  - DIABETES MELLITUS [None]
  - PEPTIC ULCER HAEMORRHAGE [None]
